FAERS Safety Report 7455456-7 (Version None)
Quarter: 2011Q2

REPORT INFORMATION
  Report Type: 
  Country: None (occurrence: None)
  Receive Date: 20110503
  Receipt Date: 20110428
  Transmission Date: 20111010
  Serious: Yes (Hospitalization)
  Sender: FDA-Public Use
  Company Number: DE-ABBOTT-11P-062-0722511-00

PATIENT
  Sex: Female

DRUGS (3)
  1. ANALGETIC DRUG [Concomitant]
     Indication: PSORIATIC ARTHROPATHY
     Dosage: UNK.
  2. CORTISONE [Concomitant]
     Indication: PSORIATIC ARTHROPATHY
     Dosage: UNK.
  3. HUMIRA [Suspect]
     Indication: PSORIATIC ARTHROPATHY
     Dosage: 40 MG MORE OFTEN THAN EVERY TWO WEEKS
     Route: 058
     Dates: start: 20070219

REACTIONS (2)
  - DEPRESSION [None]
  - PSORIASIS [None]
